FAERS Safety Report 5921521-6 (Version None)
Quarter: 2008Q4

REPORT INFORMATION
  Report Type: 
  Country: None (occurrence: None)
  Receive Date: 20081017
  Receipt Date: 20081003
  Transmission Date: 20090506
  Serious: Yes (Other)
  Sender: FDA-Public Use
  Company Number: US-JNJFOC-20081001575

PATIENT
  Sex: Female
  Weight: 48.08 kg

DRUGS (16)
  1. DURAGESIC-100 [Suspect]
     Dosage: 100UG/HR + 150UG/HR PATCH
     Route: 062
  2. DURAGESIC-100 [Suspect]
     Dosage: 100UG/HR + 100UG/HR PATCH
     Route: 062
  3. DURAGESIC-100 [Suspect]
     Indication: BACK PAIN
     Dosage: 100UG/HR + 25UG/HR PATCH
     Route: 062
  4. FENTANYL TRANSDERMAL SYSTEM [Suspect]
     Indication: BACK PAIN
     Dosage: 100UG/HR+25UG/HR
     Route: 062
  5. UNKNOWN MEDICATION [Suspect]
     Indication: DRUG USE FOR UNKNOWN INDICATION
     Route: 065
  6. HYDROCODONE BITARTRATE [Concomitant]
     Indication: BREAKTHROUGH PAIN
     Dosage: 10/650MG AS NEEDED
     Route: 048
  7. SALAGEN [Concomitant]
     Indication: DRY EYE
     Route: 048
  8. SALAGEN [Concomitant]
     Indication: DRY MOUTH
     Route: 048
  9. SENNA [Concomitant]
     Indication: CONSTIPATION
     Route: 048
  10. ALLEGRA [Concomitant]
     Indication: SEASONAL ALLERGY
     Route: 048
  11. NASONEX [Concomitant]
     Indication: SEASONAL ALLERGY
     Dosage: 2 SPRAYS EACH NOSTRIL DAILY
     Route: 045
  12. PROVENTIL [Concomitant]
     Indication: ASTHMA
     Route: 055
  13. SEREVENT [Concomitant]
     Indication: ASTHMA
     Route: 055
  14. FOLIC ACID [Concomitant]
     Indication: HEPATITIS C
     Route: 048
  15. LIDOCAINE [Concomitant]
     Indication: RHEUMATOID ARTHRITIS
     Route: 061
  16. RESTASIS [Concomitant]
     Indication: DRY EYE
     Dosage: 2DROPS EACH EYE TWICE A DAY
     Route: 050

REACTIONS (12)
  - ANXIETY [None]
  - ARTHRALGIA [None]
  - DEPRESSION [None]
  - DRUG INEFFECTIVE [None]
  - INAPPROPRIATE SCHEDULE OF DRUG ADMINISTRATION [None]
  - INSOMNIA [None]
  - MULTIPLE SCLEROSIS [None]
  - MUSCLE SPASMS [None]
  - PARKINSONISM [None]
  - RESTLESS LEGS SYNDROME [None]
  - URTICARIA [None]
  - WITHDRAWAL SYNDROME [None]
